FAERS Safety Report 5135915-2 (Version None)
Quarter: 2006Q4

REPORT INFORMATION
  Report Type: 
  Country: None (occurrence: None)
  Receive Date: 20061020
  Receipt Date: 20061011
  Transmission Date: 20070319
  Serious: Yes (Hospitalization)
  Sender: FDA-Public Use
  Company Number: 148575ISR

PATIENT
  Age: 36 Year
  Sex: Female

DRUGS (1)
  1. IBUPROFEN [Suspect]

REACTIONS (5)
  - LYMPHADENOPATHY [None]
  - MALAISE [None]
  - NEPHRITIS INTERSTITIAL [None]
  - PYREXIA [None]
  - TYPE IV HYPERSENSITIVITY REACTION [None]
